FAERS Safety Report 9792982 (Version 4)
Quarter: 2014Q1

REPORT INFORMATION
  Report Type: Spontaneous
  Country: US (occurrence: US)
  Receive Date: 20140102
  Receipt Date: 20140314
  Transmission Date: 20141002
  Serious: Yes (Other)
  Sender: FDA-Public Use
  Company Number: PHEH2013US026536

PATIENT
  Sex: Female

DRUGS (2)
  1. DIOVAN [Suspect]
     Dosage: UNK UKN, UNK
     Dates: end: 2013
  2. MULTIVITAMIN//VITAMINS NOS [Concomitant]
     Dosage: UNK UKN, UNK

REACTIONS (2)
  - Lung neoplasm malignant [Unknown]
  - Hypertension [Unknown]
